FAERS Safety Report 6303918-8 (Version None)
Quarter: 2009Q3

REPORT INFORMATION
  Report Type: 
  Country: None (occurrence: None)
  Receive Date: 20090805
  Receipt Date: 20090728
  Transmission Date: 20100115
  Serious: Yes (Other)
  Sender: FDA-Public Use
  Company Number: 2008JP005410

PATIENT
  Age: 66 Year
  Sex: Male
  Weight: 53 kg

DRUGS (11)
  1. FUNGUARD(MICAFUNGIN) INJECTION [Suspect]
     Indication: PNEUMONIA FUNGAL
     Dosage: 150 MG, UID/QD, IV DRIP
     Route: 041
     Dates: start: 20081105, end: 20081112
  2. TIENAM(IMIPENEM, CILASTATIN SODIUM) INJECTION [Suspect]
     Indication: PNEUMONIA
     Dosage: 1 G, BID, IV DRIP
     Route: 041
     Dates: start: 20081031, end: 20081112
  3. TOPOTECIN(IRINOTECAN HYDROCHLORIDE) INJECTION [Suspect]
     Indication: SMALL CELL LUNG CANCER STAGE UNSPECIFIED
     Dosage: 80 MG, UID/QD, IV DRIP
     Route: 041
     Dates: start: 20081107, end: 20081107
  4. SLOW-K [Concomitant]
  5. WARFARIN SODIUM [Concomitant]
  6. CODEINE PHOSPHATE POWDER [Concomitant]
  7. MAGMITT (MAGNESIUM OXIDE) TABLET [Concomitant]
  8. SUNRYTHM (PILSICAINIDE HYDROCHLORIDE) CAPSULE [Concomitant]
  9. FAMOTIDINE [Concomitant]
  10. ADONA (CARBAZOCHROME SODIUM SULFONATE) TABLET [Concomitant]
  11. TRANSAMIN (TRANEXAMIC ACID) TABLET [Concomitant]

REACTIONS (2)
  - RENAL FAILURE ACUTE [None]
  - STEVENS-JOHNSON SYNDROME [None]
